FAERS Safety Report 13207223 (Version 2)
Quarter: 2017Q2

REPORT INFORMATION
  Report Type: Spontaneous
  Country: US (occurrence: US)
  Receive Date: 20170209
  Receipt Date: 20170503
  Transmission Date: 20170830
  Serious: No
  Sender: FDA-Public Use
  Company Number: US-SA-2016SA232258

PATIENT
  Age: 71 Year
  Sex: Male
  Weight: 103.87 kg

DRUGS (16)
  1. RANEXA [Concomitant]
     Active Substance: RANOLAZINE
     Dosage: 1000MG?500MG
  2. ALIROCUMAB PREFILLED PEN [Concomitant]
     Active Substance: ALIROCUMAB
     Indication: HYPERLIPIDAEMIA
     Dates: start: 20160213
  3. CLOPIDOGREL [Concomitant]
     Active Substance: CLOPIDOGREL BISULFATE
  4. TAMSULOSIN [Concomitant]
     Active Substance: TAMSULOSIN
  5. BENTYL [Concomitant]
     Active Substance: DICYCLOMINE HYDROCHLORIDE
  6. CELEBREX [Concomitant]
     Active Substance: CELECOXIB
  7. IMDUR [Concomitant]
     Active Substance: ISOSORBIDE MONONITRATE
     Dosage: STRENGTH: 60MG
  8. AMLODIPINE [Concomitant]
     Active Substance: AMLODIPINE BESYLATE
  9. ISOSORBIDE MONONITRATE. [Concomitant]
     Active Substance: ISOSORBIDE MONONITRATE
  10. ZETIA [Concomitant]
     Active Substance: EZETIMIBE
  11. COREG [Concomitant]
     Active Substance: CARVEDILOL
  12. LASIX [Concomitant]
     Active Substance: FUROSEMIDE
  13. PRALUENT [Suspect]
     Active Substance: ALIROCUMAB
     Indication: HYPERLIPIDAEMIA
     Route: 058
     Dates: start: 20160213
  14. NIASPAN [Concomitant]
     Active Substance: NIACIN
     Dosage: DOSE: 1000 ER
  15. CARVEDILOL. [Concomitant]
     Active Substance: CARVEDILOL
  16. LISINOPRIL. [Concomitant]
     Active Substance: LISINOPRIL

REACTIONS (2)
  - Rhinorrhoea [Recovered/Resolved]
  - Viral upper respiratory tract infection [Recovered/Resolved]
